FAERS Safety Report 9836583 (Version 1)
Quarter: 2014Q1

REPORT INFORMATION
  Report Type: Spontaneous
  Country: US (occurrence: US)
  Receive Date: 20140123
  Receipt Date: 20140123
  Transmission Date: 20141002
  Serious: No
  Sender: FDA-Public Use
  Company Number: US-JNJFOC-20140107400

PATIENT
  Sex: Female

DRUGS (2)
  1. DURAGESIC [Suspect]
     Indication: PAIN
     Route: 062
     Dates: start: 2013, end: 20140113
  2. DURAGESIC [Suspect]
     Indication: PAIN
     Route: 062
     Dates: start: 20140113

REACTIONS (3)
  - Drug dose omission [Unknown]
  - Drug ineffective [Unknown]
  - Product quality issue [Unknown]
